FAERS Safety Report 8571957-2 (Version None)
Quarter: 2012Q3

REPORT INFORMATION
  Report Type: 
  Country: None (occurrence: None)
  Receive Date: 20120724
  Receipt Date: 20120711
  Transmission Date: 20120928
  Serious: Yes (Death, Other)
  Sender: FDA-Public Use
  Company Number: 2012P1050088

PATIENT
  Age: 41 Year
  Sex: Female

DRUGS (4)
  1. VALPROIC ACID [Concomitant]
  2. MORPHINE [Suspect]
     Indication: ACCIDENTAL POISONING
  3. GABAPENTIN [Concomitant]
  4. LEVETIRACETAM [Concomitant]

REACTIONS (3)
  - TOXICITY TO VARIOUS AGENTS [None]
  - UNRESPONSIVE TO STIMULI [None]
  - ACCIDENTAL POISONING [None]
